FAERS Safety Report 8765462 (Version 1)
Quarter: 2012Q4

REPORT INFORMATION
  Report Type: 
  Country: US (occurrence: US)
  Receive Date: 20120831
  Receipt Date: 20120831
  Transmission Date: 20130627
  Serious: Yes (Other)
  Sender: FDA-Public Use
  Company Number: US-PFIZER INC-2012211840

PATIENT
  Age: 46 Year
  Sex: Female
  Weight: 97.51 kg

DRUGS (5)
  1. NEURONTIN [Suspect]
     Indication: ARTHRITIS
     Dosage: 600 mg, 4x/day
     Route: 048
  2. NEURONTIN [Suspect]
     Dosage: UNK
     Route: 048
  3. AMITRIPTYLINE [Concomitant]
     Indication: PAIN
     Dosage: UNK
  4. AMITRIPTYLINE [Concomitant]
     Indication: ANXIETY
  5. FLUOXETINE [Concomitant]
     Indication: DEPRESSION
     Dosage: UNK

REACTIONS (5)
  - Intervertebral disc disorder [Unknown]
  - Joint swelling [Not Recovered/Not Resolved]
  - Arthritis [Unknown]
  - Inflammation [Not Recovered/Not Resolved]
  - Pain [Not Recovered/Not Resolved]
